FAERS Safety Report 23010409 (Version 3)
Quarter: 2023Q4

REPORT INFORMATION
  Report Type: Report from Study
  Country: US (occurrence: US)
  Receive Date: 20230929
  Receipt Date: 20231214
  Transmission Date: 20240110
  Serious: No
  Sender: FDA-Public Use
  Company Number: US-GSK-US2023AMR130228

PATIENT
  Sex: Female
  Weight: 52.154 kg

DRUGS (1)
  1. MEPOLIZUMAB [Suspect]
     Active Substance: MEPOLIZUMAB
     Indication: Product used for unknown indication
     Dosage: UNK MG
     Dates: start: 2023

REACTIONS (10)
  - Cough [Unknown]
  - Oral mucosal blistering [Unknown]
  - Pyrexia [Unknown]
  - Dizziness [Unknown]
  - Drooling [Unknown]
  - Alopecia [Unknown]
  - Swelling face [Unknown]
  - Nausea [Unknown]
  - Sleep disorder [Unknown]
  - Abdominal discomfort [Unknown]
